FAERS Safety Report 9376921 (Version 1)
Quarter: 2013Q3

REPORT INFORMATION
  Report Type: Spontaneous
  Country: FR (occurrence: FR)
  Receive Date: 20130701
  Receipt Date: 20130701
  Transmission Date: 20140515
  Serious: Yes (Other)
  Sender: FDA-Public Use
  Company Number: PHHY2013FR066611

PATIENT
  Age: 77 Year
  Sex: Male

DRUGS (9)
  1. EXFORGE [Suspect]
     Indication: HYPERTENSION
     Route: 048
  2. LODOZ [Suspect]
     Indication: HYPERTENSION
     Route: 048
  3. METFORMIN [Concomitant]
  4. PARIET [Concomitant]
  5. GLIMEPIRIDE [Concomitant]
  6. KEPPRA [Concomitant]
  7. CLOPIDOGREL [Concomitant]
  8. TAHOR [Concomitant]
  9. EUPRESSYL [Concomitant]

REACTIONS (3)
  - Eosinophilia [Recovered/Resolved]
  - Blood immunoglobulin E increased [Recovered/Resolved]
  - Asthenia [Recovered/Resolved]
